FAERS Safety Report 9348941 (Version 1)
Quarter: 2013Q2

REPORT INFORMATION
  Report Type: Spontaneous
  Country: FR (occurrence: FR)
  Receive Date: 20130614
  Receipt Date: 20130614
  Transmission Date: 20140414
  Serious: Yes (Hospitalization)
  Sender: FDA-Public Use
  Company Number: FR-JHP PHARMACEUTICALS, LLC-JHP201300352

PATIENT
  Sex: 0

DRUGS (3)
  1. KETALAR [Suspect]
     Indication: DRUG ABUSE
  2. COCAINE [Suspect]
     Indication: DRUG ABUSE
  3. AMPHETAMINE [Suspect]
     Indication: DRUG ABUSE

REACTIONS (1)
  - Chest pain [Unknown]
